FAERS Safety Report 9747604 (Version 1)
Quarter: 2013Q4

REPORT INFORMATION
  Report Type: Spontaneous
  Country: US (occurrence: None)
  Receive Date: 20131206
  Receipt Date: 20131206
  Transmission Date: 20140711
  Serious: Yes (Death)
  Sender: FDA-Public Use
  Company Number: 2013P1021576

PATIENT
  Age: 89 Year
  Sex: Male

DRUGS (3)
  1. AMLODIPINE [Suspect]
  2. GABAPENTIN [Suspect]
  3. METFORMIN [Concomitant]

REACTIONS (1)
  - Toxicity to various agents [None]
